FAERS Safety Report 5399866-0 (Version None)
Quarter: 2007Q3

REPORT INFORMATION
  Report Type: 
  Country: None (occurrence: None)
  Receive Date: 20070730
  Receipt Date: 20070724
  Transmission Date: 20080115
  Serious: Yes (Other)
  Sender: FDA-Public Use
  Company Number: PHBS2007BR12416

PATIENT
  Age: 18 Year
  Sex: Male
  Weight: 70 kg

DRUGS (5)
  1. TEGRETOL [Suspect]
     Indication: EPILEPSY
     Dosage: 400 MG, TID
     Route: 048
  2. RIVOTRIL [Concomitant]
     Dosage: 2 MG, TID
     Route: 048
  3. PRIMIDONE [Concomitant]
     Dosage: 50 MG, TID
     Route: 048
  4. TEGRETOL [Suspect]
     Indication: EPILEPSY
     Route: 048
  5. TEGRETOL [Suspect]
     Route: 048

REACTIONS (9)
  - ABASIA [None]
  - BALANCE DISORDER [None]
  - CONDITION AGGRAVATED [None]
  - CONVULSION [None]
  - DROOLING [None]
  - FALL [None]
  - MUSCLE RIGIDITY [None]
  - PNEUMONIA [None]
  - PYREXIA [None]
